FAERS Safety Report 7486431-4 (Version None)
Quarter: 2011Q2

REPORT INFORMATION
  Report Type: 
  Country: None (occurrence: None)
  Receive Date: 20110517
  Receipt Date: 20110510
  Transmission Date: 20111010
  Serious: Yes (Death, Life-Threatening, Hospitalization)
  Sender: FDA-Public Use
  Company Number: DE-BRISTOL-MYERS SQUIBB COMPANY-15679798

PATIENT
  Age: 52 Year
  Sex: Male
  Weight: 46 kg

DRUGS (6)
  1. PANTOPRAZOLE [Concomitant]
     Indication: PROPHYLAXIS AGAINST GASTROINTESTINAL ULCER
     Dosage: 1 DF = 40 UNITS NOS
     Route: 048
     Dates: start: 20050615
  2. LEVOTHYROXINE SODIUM [Concomitant]
     Indication: HYPERTHYROIDISM
     Route: 048
     Dates: start: 20090615
  3. FLUOROURACIL [Suspect]
     Indication: HEAD AND NECK CANCER
     Dosage: CONTINUOUS INFUSION FROM DAY 1 TO DAY 4,1440 MG,4APR-4APR11.DISCONT ON 14APR11
     Route: 042
     Dates: start: 20110314, end: 20110404
  4. CETUXIMAB [Suspect]
     Indication: HEAD AND NECK CANCER
     Dosage: FOLLOWED BY 250MG/M2 ONCE A WEEK (1 IN 1 W). DISCONT ON 14APR11
     Route: 042
     Dates: start: 20110314, end: 20110404
  5. CISPLATIN [Suspect]
     Indication: HEAD AND NECK CANCER
     Dosage: 144 MG,4APR-4APR11. DISCONT ON 14APR11
     Route: 042
     Dates: start: 20110314, end: 20110404
  6. BERODUAL [Concomitant]
     Indication: ASTHMA
     Dosage: BERODUAL SPRAY

REACTIONS (6)
  - MULTI-ORGAN FAILURE [None]
  - SEPSIS [None]
  - HYPOKALAEMIA [None]
  - ELECTROCARDIOGRAM QT PROLONGED [None]
  - INFECTION [None]
  - ELECTROCARDIOGRAM T WAVE INVERSION [None]
